FAERS Safety Report 5134710-8 (Version None)
Quarter: 2006Q4

REPORT INFORMATION
  Report Type: 
  Country: None (occurrence: None)
  Receive Date: 20061019
  Receipt Date: 20061013
  Transmission Date: 20070319
  Serious: Yes (Life-Threatening, Hospitalization)
  Sender: FDA-Public Use
  Company Number: 2006PV023037

PATIENT
  Age: 61 Year
  Sex: Female

DRUGS (4)
  1. BYETTA [Suspect]
     Dosage: 10 MCG; BID; SC, SEE IMAGE
     Route: 058
     Dates: start: 20051101, end: 20051201
  2. BYETTA [Suspect]
     Dosage: 10 MCG; BID; SC, SEE IMAGE
     Route: 058
     Dates: start: 20051201
  3. GLUCOSAMINE W/CHONDROITIN SULFATE [Suspect]
     Indication: ARTHROPATHY
  4. CALCIUM SULFATE [Suspect]

REACTIONS (2)
  - ANAPHYLACTIC REACTION [None]
  - CARDIAC DISORDER [None]
